FAERS Safety Report 7349138 (Version 3)
Quarter: 2015Q3

REPORT INFORMATION
  Report Type: Spontaneous
  Country: FR (occurrence: FR)
  Receive Date: 20100408
  Receipt Date: 20150714
  Transmission Date: 20151125
  Serious: Yes (Hospitalization)
  Sender: FDA-Public Use
  Company Number: FR-PFIZER INC-2010005206

PATIENT
  Age: 74 Year
  Sex: Female

DRUGS (14)
  1. TAVANIC [Suspect]
     Active Substance: LEVOFLOXACIN
     Indication: DEVICE RELATED INFECTION
     Dosage: UNK
     Route: 048
     Dates: start: 20090113, end: 20090223
  2. ISOPTIN [Suspect]
     Active Substance: VERAPAMIL HYDROCHLORIDE
     Indication: HYPERTENSION
     Dosage: UNK
     Route: 048
  3. PROCTOLOG [Concomitant]
     Active Substance: TRIMEBUTINE
  4. LEVOTHYROX [Concomitant]
     Active Substance: LEVOTHYROXINE
  5. FUCIDINE [Interacting]
     Active Substance: FUSIDIC ACID
     Indication: DEVICE RELATED INFECTION
     Dosage: UNK
     Route: 048
     Dates: start: 20090113, end: 20090223
  6. TRIATEC [Concomitant]
     Active Substance: RAMIPRIL
  7. FUMAFER [Concomitant]
     Active Substance: FERROUS FUMARATE
  8. FORADIL [Concomitant]
     Active Substance: FORMOTEROL FUMARATE
  9. TAHOR [Interacting]
     Active Substance: ATORVASTATIN CALCIUM
     Indication: HYPERCHOLESTEROLAEMIA
     Dosage: UNK
     Route: 048
     Dates: start: 200901, end: 20090223
  10. SPECIAFOLDINE [Concomitant]
     Active Substance: FOLIC ACID
  11. SPIRIVA [Concomitant]
     Active Substance: TIOTROPIUM BROMIDE MONOHYDRATE
  12. DAONIL [Concomitant]
     Active Substance: GLYBURIDE
  13. INEXIUM [Concomitant]
     Active Substance: ESOMEPRAZOLE
  14. ZOCOR [Concomitant]
     Active Substance: SIMVASTATIN

REACTIONS (5)
  - Rhabdomyolysis [Recovered/Resolved]
  - Dysstasia [Recovered/Resolved]
  - Drug interaction [Unknown]
  - Hepatocellular injury [Recovered/Resolved]
  - Muscular weakness [Recovered/Resolved]

NARRATIVE: CASE EVENT DATE: 200901
